FAERS Safety Report 22111403 (Version 1)
Quarter: 2023Q1

REPORT INFORMATION
  Report Type: Report from Study
  Country: US (occurrence: US)
  Receive Date: 20230317
  Receipt Date: 20230317
  Transmission Date: 20230418
  Serious: Yes (Hospitalization, Other)
  Sender: FDA-Public Use
  Company Number: US-ABBVIE-4344249

PATIENT
  Sex: Male

DRUGS (1)
  1. RINVOQ [Suspect]
     Active Substance: UPADACITINIB
     Indication: Product used for unknown indication
     Route: 048
     Dates: start: 20220823

REACTIONS (5)
  - Clostridium difficile infection [Recovering/Resolving]
  - Deep vein thrombosis [Unknown]
  - Drug ineffective [Unknown]
  - Pulmonary embolism [Recovering/Resolving]
  - Haemorrhage [Not Recovered/Not Resolved]
